FAERS Safety Report 24232058 (Version 1)
Quarter: 2024Q3

REPORT INFORMATION
  Report Type: Other
  Country: BR (occurrence: BR)
  Receive Date: 20240821
  Receipt Date: 20240821
  Transmission Date: 20241017
  Serious: Yes (Hospitalization, Other)
  Sender: PL DEVELOPMENTS
  Company Number: BR-P+L Developments of Newyork Corporation-2160662

PATIENT
  Age: 56 Year
  Sex: Female
  Weight: 49 kg

DRUGS (9)
  1. OMEPRAZOLE MAGNESIUM [Suspect]
     Active Substance: OMEPRAZOLE MAGNESIUM
     Indication: Gastrointestinal disorder
     Route: 065
  2. BROMOPRIDE [Suspect]
     Active Substance: BROMOPRIDE
     Route: 065
  3. LOSARTAN [Concomitant]
     Active Substance: LOSARTAN\LOSARTAN POTASSIUM
     Route: 065
  4. Glybenclamide [Concomitant]
     Route: 065
  5. METFORMIN [Concomitant]
     Active Substance: METFORMIN HYDROCHLORIDE
     Route: 065
  6. ETHAMBUTOL [Concomitant]
     Active Substance: ETHAMBUTOL HYDROCHLORIDE
     Route: 065
     Dates: start: 20230112
  7. PYRAZINAMIDE [Concomitant]
     Active Substance: PYRAZINAMIDE
     Route: 065
     Dates: start: 20230112
  8. ISONIAZID [Concomitant]
     Active Substance: ISONIAZID
     Route: 065
     Dates: start: 20230112
  9. RIFAMPIN [Concomitant]
     Active Substance: RIFAMPIN
     Route: 065
     Dates: start: 20230112

REACTIONS (1)
  - Drug ineffective [Unknown]
